FAERS Safety Report 5410644-6 (Version None)
Quarter: 2007Q3

REPORT INFORMATION
  Report Type: 
  Country: None (occurrence: None)
  Receive Date: 20070810
  Receipt Date: 20070504
  Transmission Date: 20080115
  Serious: No
  Sender: FDA-Public Use
  Company Number: A0649962A

PATIENT
  Age: 42 Year
  Sex: Female

DRUGS (3)
  1. PAROXETINE [Suspect]
     Indication: DEPRESSION
     Dosage: 20MG PER DAY
     Route: 048
     Dates: start: 20070401
  2. BUPROPION HCL [Concomitant]
  3. XANAX [Concomitant]

REACTIONS (1)
  - THERAPEUTIC RESPONSE DECREASED [None]
